FAERS Safety Report 4327405-1 (Version None)
Quarter: 2004Q1

REPORT INFORMATION
  Report Type: 
  Country: None (occurrence: None)
  Receive Date: 20040330
  Receipt Date: 20040322
  Transmission Date: 20041129
  Serious: Yes (Hospitalization)
  Sender: FDA-Public Use
  Company Number: CA-MERCK-0403CAN00142

PATIENT
  Age: 11 Year
  Sex: Female

DRUGS (2)
  1. SINGULAIR [Suspect]
     Indication: ASTHMA
     Route: 048
     Dates: start: 20031101, end: 20040101
  2. PREDNISONE [Concomitant]
     Route: 065
     Dates: start: 20031027, end: 20031101

REACTIONS (10)
  - CLAUSTROPHOBIA [None]
  - CONVULSION [None]
  - DIFFICULTY IN WALKING [None]
  - HEADACHE [None]
  - HYPOAESTHESIA [None]
  - MYALGIA [None]
  - OEDEMA PERIPHERAL [None]
  - PARAESTHESIA [None]
  - PRESCRIBED OVERDOSE [None]
  - SLEEP DISORDER [None]
